FAERS Safety Report 24337131 (Version 1)
Quarter: 2024Q3

REPORT INFORMATION
  Report Type: Spontaneous
  Country: FR (occurrence: None)
  Receive Date: 20240919
  Receipt Date: 20240919
  Transmission Date: 20241017
  Serious: Yes (Life-Threatening, Other)
  Sender: ORION
  Company Number: FR-Orion Corporation ORION PHARMA-TREX2024-0226

PATIENT
  Age: 34 Year
  Sex: Male
  Weight: 93 kg

DRUGS (4)
  1. METHOTREXATE SODIUM [Suspect]
     Active Substance: METHOTREXATE SODIUM
     Indication: Spondyloarthropathy
     Dates: start: 2014
  2. ETANERCEPT [Suspect]
     Active Substance: ETANERCEPT
     Indication: Spondyloarthropathy
     Dates: start: 2018
  3. INFLIXIMAB [Suspect]
     Active Substance: INFLIXIMAB
     Indication: Spondyloarthropathy
     Dates: start: 2014, end: 2018
  4. FOLIC ACID [Concomitant]
     Active Substance: FOLIC ACID
     Dates: start: 2014

REACTIONS (3)
  - Philadelphia positive acute lymphocytic leukaemia [Not Recovered/Not Resolved]
  - Cytomegalovirus infection [Recovering/Resolving]
  - Product use in unapproved indication [Unknown]

NARRATIVE: CASE EVENT DATE: 20240801
